FAERS Safety Report 7877558-3 (Version None)
Quarter: 2011Q4

REPORT INFORMATION
  Report Type: 
  Country: None (occurrence: None)
  Receive Date: 20111031
  Receipt Date: 20111024
  Transmission Date: 20120403
  Serious: Yes (Hospitalization)
  Sender: FDA-Public Use
  Company Number: US-PFIZER INC-K201100711

PATIENT
  Age: 70 Year
  Sex: Male

DRUGS (8)
  1. AMARYL [Suspect]
     Dosage: 1 MG, UNK
     Dates: start: 20110612
  2. METFORMIN HCL [Suspect]
     Indication: TYPE 2 DIABETES MELLITUS
     Dosage: 850 MG, UNK
  3. RAMIPRIL [Suspect]
     Dosage: 1 MG, UNK
     Route: 048
     Dates: end: 20110531
  4. ACETYLSALICYLIC ACID [Concomitant]
     Dosage: UNK
     Dates: start: 20110303
  5. PLACEBO [Suspect]
     Dosage: UNK
     Dates: start: 20110303
  6. HUMALOG [Suspect]
     Dosage: 34 IU, UNK
     Dates: end: 20110318
  7. HUMALOG [Suspect]
     Dosage: 26 IU, UNK
     Dates: start: 20110319, end: 20110612
  8. SAXAGLIPTIN [Suspect]
     Dosage: UNK
     Dates: start: 20110303

REACTIONS (3)
  - HYPOGLYCAEMIA [None]
  - ANGINA PECTORIS [None]
  - RENAL FAILURE CHRONIC [None]
